FAERS Safety Report 18591220 (Version 2)
Quarter: 2020Q4

REPORT INFORMATION
  Report Type: Spontaneous
  Country: FR (occurrence: FR)
  Receive Date: 20201208
  Receipt Date: 20201209
  Transmission Date: 20210114
  Serious: Yes (Death, Hospitalization, Other)
  Sender: FDA-Public Use
  Company Number: FR-PFIZER INC-2020477962

PATIENT
  Sex: Female

DRUGS (10)
  1. PARACETAMOL [Suspect]
     Active Substance: ACETAMINOPHEN
     Indication: FEELING HOT
  2. CODEINE [Suspect]
     Active Substance: CODEINE
     Indication: BACK PAIN
  3. PARACETAMOL [Suspect]
     Active Substance: ACETAMINOPHEN
     Indication: BACK PAIN
     Dosage: UNK
  4. PARACETAMOL [Suspect]
     Active Substance: ACETAMINOPHEN
     Indication: ABDOMINAL PAIN
  5. METRONIDAZOLE. [Suspect]
     Active Substance: METRONIDAZOLE
     Indication: ABDOMINAL SEPSIS
     Dosage: UNK
  6. CODEINE [Suspect]
     Active Substance: CODEINE
     Indication: ABDOMINAL PAIN
  7. GENTAMYCIN [Concomitant]
     Active Substance: GENTAMICIN
     Indication: ANTIBIOTIC PROPHYLAXIS
     Dosage: UNK
  8. CLINDAMYCIN. [Suspect]
     Active Substance: CLINDAMYCIN
     Indication: TOXIC SHOCK SYNDROME STREPTOCOCCAL
     Dosage: UNK
  9. CEFOTAXIME [Suspect]
     Active Substance: CEFOTAXIME SODIUM
     Indication: ABDOMINAL SEPSIS
     Dosage: UNK
  10. CODEINE [Suspect]
     Active Substance: CODEINE
     Indication: FEELING HOT
     Dosage: UNK

REACTIONS (12)
  - Multiple organ dysfunction syndrome [Fatal]
  - Neutropenia [Unknown]
  - Renal failure [Unknown]
  - Hyperleukocytosis [Unknown]
  - Pelvic pain [Unknown]
  - Abdominal sepsis [Unknown]
  - Condition aggravated [Fatal]
  - Septic shock [Fatal]
  - Disseminated intravascular coagulation [Unknown]
  - Toxic shock syndrome streptococcal [Fatal]
  - Respiratory failure [Unknown]
  - Necrosis [Unknown]
